FAERS Safety Report 5225845-X (Version None)
Quarter: 2007Q1

REPORT INFORMATION
  Report Type: 
  Country: None (occurrence: None)
  Receive Date: 20070201
  Receipt Date: 20070126
  Transmission Date: 20070707
  Serious: Yes (Other)
  Sender: FDA-Public Use
  Company Number: US-JNJFOC-20061202755

PATIENT
  Sex: Male
  Weight: 86.18 kg

DRUGS (6)
  1. TYLENOL [Suspect]
  2. TYLENOL [Suspect]
     Indication: ARTHRITIS
  3. ALEVE [Suspect]
     Indication: ARTHRITIS
     Dosage: DAILY
     Route: 048
  4. REGLAN [Concomitant]
  5. NEXIUM [Concomitant]
  6. CHONDROITIN [Concomitant]

REACTIONS (1)
  - HAEMOPTYSIS [None]
